FAERS Safety Report 9699785 (Version 1)
Quarter: 2013Q4

REPORT INFORMATION
  Report Type: Spontaneous
  Country: US (occurrence: US)
  Receive Date: 20131120
  Receipt Date: 20131120
  Transmission Date: 20140711
  Serious: Yes (Hospitalization)
  Sender: FDA-Public Use
  Company Number: US-GILEAD-2013-0088282

PATIENT
  Sex: Female

DRUGS (4)
  1. LETAIRIS [Suspect]
     Indication: PULMONARY HYPERTENSION
     Dosage: 10 MG, UNK
     Route: 048
     Dates: start: 20100728
  2. PLAQUENIL                          /00072603/ [Concomitant]
  3. PROCARDIA                          /00340701/ [Concomitant]
  4. IRON [Concomitant]
     Dosage: UNK, Q1WK
     Route: 042

REACTIONS (2)
  - Red blood cell count decreased [Recovered/Resolved]
  - Dyspnoea [Unknown]
